FAERS Safety Report 13842034 (Version 1)
Quarter: 2017Q3

REPORT INFORMATION
  Report Type: Spontaneous
  Country: US (occurrence: US)
  Receive Date: 20170807
  Receipt Date: 20170807
  Transmission Date: 20171127
  Serious: No
  Sender: FDA-Public Use
  Company Number: US-GALDERMA-US17003290

PATIENT
  Age: 45 Year
  Sex: Female

DRUGS (1)
  1. DIFFERIN [Suspect]
     Active Substance: ADAPALENE
     Indication: ACNE
     Dosage: 03%
     Route: 061
     Dates: start: 201704

REACTIONS (4)
  - Acne [Unknown]
  - Drug ineffective [Unknown]
  - Pruritus [Unknown]
  - Depressed mood [Unknown]

NARRATIVE: CASE EVENT DATE: 201704
